FAERS Safety Report 16893707 (Version 1)
Quarter: 2019Q4

REPORT INFORMATION
  Report Type: Spontaneous
  Country: CA (occurrence: CA)
  Receive Date: 20191008
  Receipt Date: 20191008
  Transmission Date: 20200122
  Serious: Yes (Other)
  Sender: FDA-Public Use
  Company Number: CA-PFIZER INC-2019425998

PATIENT
  Age: 41 Year
  Sex: Female
  Weight: 76 kg

DRUGS (6)
  1. BELIMUMAB [Suspect]
     Active Substance: BELIMUMAB
     Dosage: 700 MG, UNK
     Route: 042
  2. METHOTREXATE SODIUM. [Suspect]
     Active Substance: METHOTREXATE SODIUM
     Dosage: 25 MG, UNK
     Route: 058
  3. BELIMUMAB [Suspect]
     Active Substance: BELIMUMAB
     Indication: SYSTEMIC LUPUS ERYTHEMATOSUS
     Dosage: 1000 MG, UNK
     Route: 042
  4. BELIMUMAB [Suspect]
     Active Substance: BELIMUMAB
     Dosage: UNK
     Route: 042
  5. BELIMUMAB [Suspect]
     Active Substance: BELIMUMAB
     Dosage: 800 MG, UNK
  6. BELIMUMAB [Suspect]
     Active Substance: BELIMUMAB
     Dosage: 700 MG, UNK
     Route: 042

REACTIONS (23)
  - Hypersensitivity [Not Recovered/Not Resolved]
  - Pain [Not Recovered/Not Resolved]
  - Somnolence [Not Recovered/Not Resolved]
  - Arthralgia [Not Recovered/Not Resolved]
  - Hyperhidrosis [Not Recovered/Not Resolved]
  - Fatigue [Not Recovered/Not Resolved]
  - Nausea [Not Recovered/Not Resolved]
  - Ankle fracture [Not Recovered/Not Resolved]
  - Headache [Not Recovered/Not Resolved]
  - Mydriasis [Not Recovered/Not Resolved]
  - Tooth infection [Not Recovered/Not Resolved]
  - Infection [Not Recovered/Not Resolved]
  - Oropharyngeal pain [Not Recovered/Not Resolved]
  - Systemic lupus erythematosus [Not Recovered/Not Resolved]
  - Off label use [Unknown]
  - Malaise [Not Recovered/Not Resolved]
  - Product use issue [Unknown]
  - Arthropathy [Not Recovered/Not Resolved]
  - Chills [Not Recovered/Not Resolved]
  - Depressed mood [Not Recovered/Not Resolved]
  - Disability [Not Recovered/Not Resolved]
  - Drug ineffective [Unknown]
  - Pyrexia [Not Recovered/Not Resolved]
